FAERS Safety Report 15940274 (Version 4)
Quarter: 2019Q2

REPORT INFORMATION
  Report Type: Spontaneous
  Country: US (occurrence: US)
  Receive Date: 20190208
  Receipt Date: 20190502
  Transmission Date: 20190711
  Serious: Yes (Other)
  Sender: FDA-Public Use
  Company Number: US-ASTRAZENECA-2018SF22235

PATIENT
  Sex: Female

DRUGS (33)
  1. PRILOSEC [Suspect]
     Active Substance: OMEPRAZOLE MAGNESIUM
     Route: 048
     Dates: start: 201201, end: 201612
  2. PREVACID 24 HR [Suspect]
     Active Substance: LANSOPRAZOLE
     Route: 065
  3. PREVACID [Suspect]
     Active Substance: LANSOPRAZOLE
     Route: 065
  4. PROTONIX [Suspect]
     Active Substance: PANTOPRAZOLE SODIUM
     Route: 065
     Dates: start: 201201, end: 201612
  5. SYNTHROID [Concomitant]
     Active Substance: LEVOTHYROXINE SODIUM
  6. CETRIZINE [Concomitant]
     Active Substance: CETIRIZINE HYDROCHLORIDE
  7. CIPRO [Concomitant]
     Active Substance: CIPROFLOXACIN HYDROCHLORIDE
  8. NEXIUM [Suspect]
     Active Substance: ESOMEPRAZOLE MAGNESIUM
     Route: 048
  9. PRILOSEC [Suspect]
     Active Substance: OMEPRAZOLE MAGNESIUM
     Route: 048
  10. DULOXETINE. [Concomitant]
     Active Substance: DULOXETINE
  11. MIRALAX [Concomitant]
     Active Substance: POLYETHYLENE GLYCOL 3350
  12. SIMVASTATIN. [Concomitant]
     Active Substance: SIMVASTATIN
  13. SENOKOT [Concomitant]
     Active Substance: SENNOSIDES
  14. VITAMIN D2 [Concomitant]
     Active Substance: ERGOCALCIFEROL
  15. CALCITRIOL. [Concomitant]
     Active Substance: CALCITRIOL
  16. AMLODIPINE BESYLATE. [Concomitant]
     Active Substance: AMLODIPINE BESYLATE
  17. BUPROPION. [Concomitant]
     Active Substance: BUPROPION
  18. KEFLEX [Concomitant]
     Active Substance: CEPHALEXIN
  19. NEXIUM 24HR [Suspect]
     Active Substance: ESOMEPRAZOLE MAGNESIUM
     Route: 048
  20. POTASSIUM CHLORIDE. [Concomitant]
     Active Substance: POTASSIUM CHLORIDE
  21. CINNAMON. [Concomitant]
     Active Substance: CINNAMON
  22. CYCLOBENZAPRINE. [Concomitant]
     Active Substance: CYCLOBENZAPRINE
  23. GARLIC. [Concomitant]
     Active Substance: GARLIC
  24. PRILOSEC OTC [Suspect]
     Active Substance: OMEPRAZOLE MAGNESIUM
     Route: 048
  25. NORVASC [Concomitant]
     Active Substance: AMLODIPINE BESYLATE
  26. VOLTAREN [Concomitant]
     Active Substance: DICLOFENAC SODIUM
  27. SERTRALINE [Concomitant]
     Active Substance: SERTRALINE HYDROCHLORIDE
  28. METHYLPHENIDATE. [Concomitant]
     Active Substance: METHYLPHENIDATE
  29. CARDURA [Concomitant]
     Active Substance: DOXAZOSIN MESYLATE
  30. REMERON [Concomitant]
     Active Substance: MIRTAZAPINE
  31. NEXIUM [Suspect]
     Active Substance: ESOMEPRAZOLE MAGNESIUM
     Route: 048
     Dates: start: 201201, end: 201612
  32. TORSEMIDE. [Concomitant]
     Active Substance: TORSEMIDE
  33. URECHOLINE [Concomitant]
     Active Substance: BETHANECHOL CHLORIDE

REACTIONS (5)
  - End stage renal disease [Unknown]
  - Renal injury [Unknown]
  - Chronic kidney disease [Unknown]
  - Nephrogenic anaemia [Unknown]
  - Acute kidney injury [Unknown]
